FAERS Safety Report 5986388-9 (Version None)
Quarter: 2008Q4

REPORT INFORMATION
  Report Type: 
  Country: None (occurrence: None)
  Receive Date: 20081209
  Receipt Date: 20080408
  Transmission Date: 20090506
  Serious: No
  Sender: FDA-Public Use
  Company Number: US-AMGEN-KDL270808

PATIENT
  Sex: Female
  Weight: 134.4 kg

DRUGS (1)
  1. ENBREL [Suspect]
     Indication: ANKYLOSING SPONDYLITIS
     Route: 058
     Dates: start: 20070927

REACTIONS (7)
  - ANKYLOSING SPONDYLITIS [None]
  - INFLUENZA [None]
  - INSOMNIA [None]
  - IRITIS [None]
  - MOBILITY DECREASED [None]
  - PNEUMONIA [None]
  - RESPIRATORY TRACT CONGESTION [None]
